FAERS Safety Report 5475731-5 (Version None)
Quarter: 2007Q4

REPORT INFORMATION
  Report Type: 
  Country: None (occurrence: None)
  Receive Date: 20071001
  Receipt Date: 20070925
  Transmission Date: 20080405
  Serious: Yes (Hospitalization)
  Sender: FDA-Public Use
  Company Number: 2007SP019212

PATIENT
  Age: 57 Year
  Sex: Male

DRUGS (2)
  1. PEG-INTRON [Suspect]
     Indication: HEPATITIS C
     Dosage: UNK, SC
     Route: 058
     Dates: start: 20070803
  2. RIBAVIRIN [Suspect]
     Indication: HEPATITIS C
     Dosage: UNK; PO
     Route: 048
     Dates: start: 20070803

REACTIONS (4)
  - DIVERTICULITIS [None]
  - FATIGUE [None]
  - PLATELET COUNT DECREASED [None]
  - WHITE BLOOD CELL COUNT DECREASED [None]
